FAERS Safety Report 5160194-X (Version None)
Quarter: 2006Q4

REPORT INFORMATION
  Report Type: 
  Country: None (occurrence: None)
  Receive Date: 20061120
  Receipt Date: 20061102
  Transmission Date: 20070319
  Serious: Yes (Hospitalization)
  Sender: FDA-Public Use
  Company Number: TRP_0887_2006

PATIENT
  Age: 45 Year
  Sex: Male

DRUGS (6)
  1. RIBASPHERE [Suspect]
     Indication: HEPATITIS C
     Dosage: DF PO
     Route: 048
     Dates: start: 20060713
  2. PEG-INTRON [Suspect]
     Indication: HEPATITIS C
     Dosage: DF QWK SC
     Route: 058
     Dates: start: 20060713
  3. AVANDIA [Concomitant]
  4. GLIPIZIDE [Concomitant]
  5. LISINOPRIL [Concomitant]
  6. ZANTAC [Concomitant]

REACTIONS (5)
  - BITE [None]
  - INFECTION [None]
  - MOVEMENT DISORDER [None]
  - OSTEOMYELITIS [None]
  - PAIN IN EXTREMITY [None]
